FAERS Safety Report 13950291 (Version 2)
Quarter: 2017Q3

REPORT INFORMATION
  Report Type: Spontaneous
  Country: PT (occurrence: PT)
  Receive Date: 20170908
  Receipt Date: 20170913
  Transmission Date: 20171128
  Serious: Yes (Life-Threatening, Hospitalization, Other)
  Sender: FDA-Public Use
  Company Number: PT-TEVA-804346ROM

PATIENT
  Age: 70 Year
  Sex: Female

DRUGS (8)
  1. BROMAZEPAM [Suspect]
     Active Substance: BROMAZEPAM
     Indication: ANTIDEPRESSANT THERAPY
     Route: 065
  2. DIAZEPAM. [Suspect]
     Active Substance: DIAZEPAM
     Indication: ANTIDEPRESSANT THERAPY
     Route: 065
  3. DULOXETINE. [Suspect]
     Active Substance: DULOXETINE
     Indication: ANTIDEPRESSANT THERAPY
     Route: 065
  4. CLOMIPRAMINE [Suspect]
     Active Substance: CLOMIPRAMINE
     Indication: ANTIDEPRESSANT THERAPY
     Route: 065
  5. VALPROIC ACID. [Concomitant]
     Active Substance: VALPROIC ACID
  6. VENLAFAXINE [Suspect]
     Active Substance: VENLAFAXINE HYDROCHLORIDE
     Indication: ANTIDEPRESSANT THERAPY
     Route: 065
  7. LORAZEPAM. [Suspect]
     Active Substance: LORAZEPAM
     Indication: ANTIDEPRESSANT THERAPY
     Route: 065
  8. TRIHEXYPHENIDYL [Concomitant]
     Active Substance: TRIHEXYPHENIDYL

REACTIONS (7)
  - Acute kidney injury [Unknown]
  - Respiratory depression [Unknown]
  - Hyperchloraemia [Unknown]
  - Drug screen false positive [Unknown]
  - Hypernatraemia [Unknown]
  - Overdose [Unknown]
  - Coma [Unknown]
